FAERS Safety Report 17292395 (Version 1)
Quarter: 2020Q1

REPORT INFORMATION
  Report Type: Spontaneous
  Country: CN (occurrence: CN)
  Receive Date: 20200121
  Receipt Date: 20200121
  Transmission Date: 20200409
  Serious: Yes (Life-Threatening)
  Sender: FDA-Public Use
  Company Number: CN-BAYER-2019-232230

PATIENT
  Age: 52 Year
  Sex: Male
  Weight: 86 kg

DRUGS (2)
  1. IOPROMIDE. [Suspect]
     Active Substance: IOPROMIDE
     Indication: CHEST DISCOMFORT
     Dosage: UNK UNK, ONCE
     Route: 042
     Dates: start: 20191213, end: 20191213
  2. IOPROMIDE. [Suspect]
     Active Substance: IOPROMIDE
     Indication: ANGIOCARDIOGRAM

REACTIONS (8)
  - Pharyngeal hypoaesthesia [None]
  - Throat tightness [None]
  - Laryngeal oedema [Recovered/Resolved]
  - Urticaria [Recovered/Resolved]
  - Periorbital swelling [None]
  - Contrast media allergy [Recovering/Resolving]
  - Sneezing [Recovering/Resolving]
  - Erythema [None]

NARRATIVE: CASE EVENT DATE: 20191213
